FAERS Safety Report 5411300-0 (Version None)
Quarter: 2007Q3

REPORT INFORMATION
  Report Type: 
  Country: None (occurrence: None)
  Receive Date: 20070810
  Receipt Date: 20070801
  Transmission Date: 20080115
  Serious: Yes (Other)
  Sender: FDA-Public Use
  Company Number: GB-ROCHE-510540

PATIENT
  Age: 59 Year
  Sex: Male
  Weight: 103.9 kg

DRUGS (1)
  1. XENICAL [Suspect]
     Indication: OBESITY
     Route: 048
     Dates: start: 20070627

REACTIONS (1)
  - RHEUMATOID ARTHRITIS [None]
